FAERS Safety Report 6892525-4 (Version None)
Quarter: 2010Q3

REPORT INFORMATION
  Report Type: 
  Country: None (occurrence: None)
  Receive Date: 20100731
  Receipt Date: 20080814
  Transmission Date: 20110219
  Serious: No
  Sender: FDA-Public Use
  Company Number: US-PFIZER INC-2008054271

PATIENT
  Sex: Female

DRUGS (4)
  1. NEURONTIN [Suspect]
  2. GLIPIZIDE [Suspect]
  3. METFORMIN HCL [Suspect]
  4. GLUCOPHAGE [Suspect]

REACTIONS (1)
  - BLOOD GLUCOSE INCREASED [None]
